FAERS Safety Report 9416189 (Version 1)
Quarter: 2013Q3

REPORT INFORMATION
  Report Type: Spontaneous
  Country: US (occurrence: None)
  Receive Date: 20130723
  Receipt Date: 20130723
  Transmission Date: 20140515
  Serious: Yes (Hospitalization, Disabling)
  Sender: FDA-Public Use
  Company Number: None

PATIENT
  Age: 68 Year
  Sex: Male

DRUGS (17)
  1. HEPARIN [Suspect]
     Indication: CORONARY ARTERY BYPASS
     Dosage: TOTAL 28,000 UNITS DURING SURG
     Dates: start: 20130317, end: 20130317
  2. ENOXAPARIN [Suspect]
     Indication: THROMBOSIS PROPHYLAXIS
     Route: 058
     Dates: start: 20130320, end: 20130320
  3. AMIODARONE [Concomitant]
  4. DUONEB [Concomitant]
  5. ASPIRIN [Concomitant]
  6. BUMETANIDE [Concomitant]
  7. DIGOXIN [Concomitant]
  8. DOCUSATE [Concomitant]
  9. GUAIFENESIN [Concomitant]
  10. INSULIN [Concomitant]
  11. MEROPENEM [Concomitant]
  12. NIFEDIPINE [Concomitant]
  13. PANTOPRAZOLE [Concomitant]
  14. SILDENAFIL [Concomitant]
  15. VANCOMYCIN [Concomitant]
  16. DOBUTAMINE [Concomitant]
  17. MILRINONE [Concomitant]

REACTIONS (6)
  - Heparin-induced thrombocytopenia [None]
  - Peripheral ischaemia [None]
  - Laboratory test abnormal [None]
  - Hand amputation [None]
  - Leg amputation [None]
  - Arm amputation [None]
